FAERS Safety Report 18513011 (Version 2)
Quarter: 2020Q4

REPORT INFORMATION
  Report Type: Spontaneous
  Country: US (occurrence: US)
  Receive Date: 20201117
  Receipt Date: 20201215
  Transmission Date: 20210114
  Serious: No
  Sender: FDA-Public Use
  Company Number: US-PFIZER INC-2020449245

PATIENT
  Age: 65 Year
  Sex: Male

DRUGS (1)
  1. XELJANZ XR [Suspect]
     Active Substance: TOFACITINIB CITRATE
     Indication: RHEUMATOID ARTHRITIS
     Dosage: 11 MG, DAILY
     Route: 048
     Dates: start: 2015

REACTIONS (6)
  - Blood cholesterol abnormal [Unknown]
  - Depressed mood [Unknown]
  - Joint range of motion decreased [Unknown]
  - Pain [Unknown]
  - Arthritis [Unknown]
  - Peripheral swelling [Unknown]
